FAERS Safety Report 19976006 (Version 3)
Quarter: 2022Q2

REPORT INFORMATION
  Report Type: Report from Study
  Country: CA (occurrence: CA)
  Receive Date: 20211021
  Receipt Date: 20220412
  Transmission Date: 20220720
  Serious: Yes (Other)
  Sender: FDA-Public Use
  Company Number: CA-ABBVIE-21K-028-4126719-00

PATIENT
  Age: 66 Year
  Sex: Female

DRUGS (1)
  1. SKYRIZI [Suspect]
     Active Substance: RISANKIZUMAB-RZAA
     Indication: Psoriasis
     Route: 058
     Dates: start: 20190606

REACTIONS (8)
  - Loss of consciousness [Unknown]
  - Fall [Unknown]
  - Radius fracture [Recovered/Resolved]
  - Skin exfoliation [Unknown]
  - Onychoclasis [Unknown]
  - Nail disorder [Unknown]
  - Arthropathy [Unknown]
  - Pain in extremity [Not Recovered/Not Resolved]

NARRATIVE: CASE EVENT DATE: 20210917
